FAERS Safety Report 9746372 (Version 1)
Quarter: 2013Q4

REPORT INFORMATION
  Report Type: Spontaneous
  Country: GB (occurrence: GB)
  Receive Date: 20131211
  Receipt Date: 20131211
  Transmission Date: 20140711
  Serious: Yes (Life-Threatening, Other)
  Sender: FDA-Public Use
  Company Number: GB-PFIZER INC-2013352119

PATIENT
  Age: 33 Year
  Sex: Female

DRUGS (4)
  1. PREGABALIN [Suspect]
     Dosage: UNK
  2. METHADONE [Concomitant]
     Indication: DRUG WITHDRAWAL MAINTENANCE THERAPY
     Dosage: UNK
     Dates: start: 20130817, end: 20131125
  3. THIAMINE [Concomitant]
     Dosage: UNK
     Dates: start: 20130918, end: 20130925
  4. THIAMINE [Concomitant]
     Dosage: UNK
     Dates: start: 20131004, end: 20131111

REACTIONS (3)
  - Drug abuse [Recovered/Resolved]
  - Accidental overdose [Unknown]
  - Respiratory arrest [Unknown]
